FAERS Safety Report 22176186 (Version 1)
Quarter: 2023Q2

REPORT INFORMATION
  Report Type: Spontaneous
  Country: US (occurrence: None)
  Receive Date: 20230404
  Receipt Date: 20230404
  Transmission Date: 20230722
  Serious: Yes (Other)
  Sender: FDA-Public Use
  Company Number: None

PATIENT
  Age: 36 Year
  Sex: Female
  Weight: 73.4 kg

DRUGS (1)
  1. REMICADE [Suspect]
     Active Substance: INFLIXIMAB
     Indication: Crohn^s disease
     Dosage: OTHER FREQUENCY : EVERY 8 WEEKS;?
     Route: 042

REACTIONS (6)
  - Fatigue [None]
  - Infusion related reaction [None]
  - Headache [None]
  - Dizziness [None]
  - Migraine [None]
  - Nausea [None]

NARRATIVE: CASE EVENT DATE: 20230329
